FAERS Safety Report 13465760 (Version 1)
Quarter: 2017Q2

REPORT INFORMATION
  Report Type: Spontaneous
  Country: US (occurrence: US)
  Receive Date: 20170420
  Receipt Date: 20170420
  Transmission Date: 20170830
  Serious: Yes (Other)
  Sender: FDA-Public Use
  Company Number: None

PATIENT
  Age: 67 Year
  Sex: Male
  Weight: 63.56 kg

DRUGS (1)
  1. RIBAVIRIN 200MG ZYDUS [Suspect]
     Active Substance: RIBAVIRIN
     Indication: HEPATITIS C
     Dosage: 200MG 2XWEEK PO
     Route: 048

REACTIONS (5)
  - Weight decreased [None]
  - Vomiting [None]
  - Suicidal ideation [None]
  - Decreased appetite [None]
  - Anaemia [None]

NARRATIVE: CASE EVENT DATE: 20170407
